FAERS Safety Report 10311962 (Version 1)
Quarter: 2014Q3

REPORT INFORMATION
  Report Type: Spontaneous
  Country: JP (occurrence: JP)
  Receive Date: 20140717
  Receipt Date: 20140717
  Transmission Date: 20150326
  Serious: Yes (Other)
  Sender: FDA-Public Use
  Company Number: PHHY2009JP071957

PATIENT
  Age: 35 Year
  Sex: Female

DRUGS (2)
  1. TASIGNA [Suspect]
     Active Substance: NILOTINIB
     Indication: CHRONIC MYELOID LEUKAEMIA
     Dosage: 800 MG, DAILY
     Dates: start: 20090422
  2. SPRYCEL [Suspect]
     Active Substance: DASATINIB

REACTIONS (2)
  - Rash [Unknown]
  - Electrocardiogram QT prolonged [Unknown]
